FAERS Safety Report 4745403-0 (Version None)
Quarter: 2005Q3

REPORT INFORMATION
  Report Type: 
  Country: None (occurrence: None)
  Receive Date: 20050815
  Receipt Date: 20050714
  Transmission Date: 20060218
  Serious: Yes (Hospitalization)
  Sender: FDA-Public Use
  Company Number: CLOF-10044

PATIENT
  Age: 70 Year
  Sex: Male

DRUGS (9)
  1. CLOFARABINE [Suspect]
     Indication: ACUTE MYELOID LEUKAEMIA
     Dosage: 60 MG/M2 QD IV
     Route: 042
     Dates: start: 20050606, end: 20050614
  2. RAMIPRIL [Concomitant]
  3. COTRIMAZOLE [Concomitant]
  4. AMIBRIDE [Concomitant]
  5. CLEXANE [Concomitant]
  6. VORICONAZOLE [Concomitant]
  7. CYCLIZINE [Concomitant]
  8. ONDANSETRON [Concomitant]
  9. ALLOPURINOL [Concomitant]

REACTIONS (6)
  - CELLULITIS [None]
  - DYSPNOEA [None]
  - FEBRILE NEUTROPENIA [None]
  - HAEMOGLOBIN DECREASED [None]
  - JOINT SWELLING [None]
  - THROMBOSIS [None]
